FAERS Safety Report 16653444 (Version 1)
Quarter: 2019Q3

REPORT INFORMATION
  Report Type: Spontaneous
  Country: FR (occurrence: FR)
  Receive Date: 20190731
  Receipt Date: 20190731
  Transmission Date: 20191004
  Serious: Yes (Life-Threatening, Hospitalization)
  Sender: FDA-Public Use
  Company Number: FR-TEVA-2019-FR-1085706

PATIENT
  Age: 49 Year
  Sex: Female
  Weight: 130 kg

DRUGS (7)
  1. KENZEN [Concomitant]
     Active Substance: CANDESARTAN CILEXETIL
  2. DEROXAT 20 MG, COMPRIM? PELLICUL? S?CABLE [Concomitant]
     Active Substance: PAROXETINE HYDROCHLORIDE
  3. AMOXICILLINE [Suspect]
     Active Substance: AMOXICILLIN
     Indication: BRONCHITIS
     Route: 048
     Dates: start: 20190705, end: 20190705
  4. LEVOTHYROX 50 MICROGRAMMES, COMPRIM? S?CABLE [Concomitant]
     Active Substance: LEVOTHYROXINE SODIUM
  5. MIFLONIL [Concomitant]
     Active Substance: BUDESONIDE
  6. LAMICTAL 5 MG, COMPRIM? DISPERSIBLE OU ? CROQUER [Concomitant]
  7. FORADIL [Concomitant]
     Active Substance: FORMOTEROL FUMARATE

REACTIONS (4)
  - Malaise [Recovered/Resolved]
  - Erythema [Recovered/Resolved]
  - Hypotension [Recovered/Resolved]
  - Dyspnoea [Recovered/Resolved]

NARRATIVE: CASE EVENT DATE: 20190705
